FAERS Safety Report 11493030 (Version 3)
Quarter: 2015Q4

REPORT INFORMATION
  Report Type: Report from Study
  Country: GB (occurrence: GB)
  Receive Date: 20150911
  Receipt Date: 20151229
  Transmission Date: 20160304
  Serious: Yes (Hospitalization)
  Sender: FDA-Public Use
  Company Number: GB-BRISTOL-MYERS SQUIBB COMPANY-BMS-2015-059889

PATIENT
  Age: 69 Year
  Sex: Female

DRUGS (1)
  1. ABATACEPT [Suspect]
     Active Substance: ABATACEPT
     Indication: RHEUMATOID ARTHRITIS
     Dosage: 125 MG, QWK; PRE-FILLED SYRINGE
     Route: 058
     Dates: start: 20150224

REACTIONS (3)
  - Pharyngitis [Unknown]
  - Joint lock [Unknown]
  - Arthralgia [Unknown]

NARRATIVE: CASE EVENT DATE: 201508
